FAERS Safety Report 8767447 (Version 1)
Quarter: 2012Q4

REPORT INFORMATION
  Report Type: 
  Country: GB (occurrence: GB)
  Receive Date: 20120904
  Receipt Date: 20120904
  Transmission Date: 20130627
  Serious: Yes (Other)
  Sender: FDA-Public Use
  Company Number: GB-RANBAXY-2012R1-59389

PATIENT
  Sex: Male

DRUGS (5)
  1. RAMIPRIL [Suspect]
     Indication: CARDIAC DISORDER
     Dosage: 1.25 mg, qd
     Route: 048
  2. AMLODIPINE [Concomitant]
     Indication: CARDIAC DISORDER
     Dosage: 10 mg, qd
     Route: 065
  3. ASPIRIN [Concomitant]
     Indication: CARDIAC DISORDER
     Dosage: 75 mg, qd
     Route: 065
  4. CLOPIDOGREL [Concomitant]
     Indication: CARDIAC DISORDER
     Dosage: 75 mg, qd
     Route: 065
  5. SPIRONOLACTONE [Concomitant]
     Indication: CARDIAC DISORDER
     Dosage: 75 mg, qd
     Route: 065

REACTIONS (1)
  - Vision blurred [Not Recovered/Not Resolved]
